FAERS Safety Report 5502020-2 (Version None)
Quarter: 2007Q4

REPORT INFORMATION
  Report Type: 
  Country: None (occurrence: None)
  Receive Date: 20071030
  Receipt Date: 20071017
  Transmission Date: 20080405
  Serious: Yes (Other)
  Sender: FDA-Public Use
  Company Number: D0054840A

PATIENT
  Sex: Female

DRUGS (2)
  1. REQUIP [Suspect]
     Indication: PARKINSONISM
     Dosage: 2MG THREE TIMES PER DAY
     Route: 048
  2. BETA BLOCKER [Concomitant]
     Route: 065
     Dates: start: 20050101

REACTIONS (3)
  - ANXIETY [None]
  - ARRHYTHMIA [None]
  - VENTRICULAR TACHYCARDIA [None]
